FAERS Safety Report 22664824 (Version 5)
Quarter: 2024Q1

REPORT INFORMATION
  Report Type: Spontaneous
  Country: CA (occurrence: CA)
  Receive Date: 20230703
  Receipt Date: 20240221
  Transmission Date: 20240410
  Serious: Yes (Life-Threatening, Hospitalization, Other)
  Sender: FDA-Public Use
  Company Number: CA-PFIZER INC-PV202300114724

PATIENT
  Age: 5 Year
  Sex: Female
  Weight: 18.4 kg

DRUGS (9)
  1. METHOTREXATE SODIUM [Interacting]
     Active Substance: METHOTREXATE SODIUM
     Indication: B-cell type acute leukaemia
     Dosage: 200 MG/M2, CYCLIC, DAY 1
     Route: 042
  2. METHOTREXATE SODIUM [Interacting]
     Active Substance: METHOTREXATE SODIUM
     Dosage: 12 MG/M2, CYCLIC, DAY 1
     Route: 037
  3. METHOTREXATE SODIUM [Interacting]
     Active Substance: METHOTREXATE SODIUM
     Dosage: 200 MG/M2, CYCLIC, DAY 11
     Route: 042
  4. METHOTREXATE SODIUM [Interacting]
     Active Substance: METHOTREXATE SODIUM
     Dosage: 250 MG/M2, CYCLIC, DAY 21
     Route: 042
  5. METHOTREXATE SODIUM [Interacting]
     Active Substance: METHOTREXATE SODIUM
     Dosage: 300 MG/M2, CYCLIC, DAY 31
     Route: 042
  6. METHOTREXATE SODIUM [Interacting]
     Active Substance: METHOTREXATE SODIUM
     Dosage: 12 MG/M2, CYCLIC, DAY 31
     Route: 037
  7. METHOTREXATE SODIUM [Interacting]
     Active Substance: METHOTREXATE SODIUM
     Dosage: 350 MG/M2, CYCLIC, DAY 41
     Route: 042
  8. ASPIRIN [Interacting]
     Active Substance: ASPIRIN
     Indication: Cerebrovascular accident
     Dosage: 80 MG, DAILY
  9. VINCRISTINE [Concomitant]
     Active Substance: VINCRISTINE
     Indication: Cerebrovascular accident
     Dosage: 1.5 MG/M2, CYCLIC

REACTIONS (2)
  - Nephropathy toxic [Unknown]
  - Drug interaction [Unknown]
